FAERS Safety Report 5313238-6 (Version None)
Quarter: 2007Q2

REPORT INFORMATION
  Report Type: 
  Country: None (occurrence: None)
  Receive Date: 20070501
  Receipt Date: 20070419
  Transmission Date: 20071010
  Serious: Yes (Other)
  Sender: FDA-Public Use
  Company Number: PHBS2007JP06428

PATIENT
  Age: 63 Year
  Sex: Male

DRUGS (2)
  1. GLEEVEC [Suspect]
     Indication: GASTROINTESTINAL STROMAL TUMOUR
     Route: 048
     Dates: start: 20060401, end: 20060410
  2. GLEEVEC [Suspect]
     Route: 048

REACTIONS (5)
  - CARDIOMEGALY [None]
  - INFLAMMATION [None]
  - LUNG ABSCESS [None]
  - PLEURAL EFFUSION [None]
  - PYREXIA [None]
